FAERS Safety Report 19285283 (Version 1)
Quarter: 2021Q2

REPORT INFORMATION
  Report Type: Spontaneous
  Country: US (occurrence: US)
  Receive Date: 20210521
  Receipt Date: 20210521
  Transmission Date: 20210717
  Serious: Yes (Hospitalization)
  Sender: FDA-Public Use
  Company Number: US-MYLANLABS-2021M1029486

PATIENT
  Age: 80 Year
  Sex: Female

DRUGS (1)
  1. HEPARIN [Suspect]
     Active Substance: HEPARIN SODIUM
     Indication: PRODUCT USED FOR UNKNOWN INDICATION
     Route: 065

REACTIONS (4)
  - Heparin-induced thrombocytopenia [Recovering/Resolving]
  - Coronary artery occlusion [Recovering/Resolving]
  - Acute myocardial infarction [Recovering/Resolving]
  - Pulmonary embolism [Recovering/Resolving]
